FAERS Safety Report 10918002 (Version 3)
Quarter: 2015Q2

REPORT INFORMATION
  Report Type: Spontaneous
  Country: ZA (occurrence: ZA)
  Receive Date: 20150316
  Receipt Date: 20150430
  Transmission Date: 20150821
  Serious: Yes (Death, Hospitalization, Other)
  Sender: FDA-Public Use
  Company Number: ZA-PFIZER INC-2015087801

PATIENT
  Age: 78 Year
  Sex: Male

DRUGS (15)
  1. PRITOR [Concomitant]
     Active Substance: TELMISARTAN
     Indication: HYPERTENSION
     Dosage: 80 MG, UNK
     Route: 048
  2. PLENISH-K [Concomitant]
     Indication: SUPPLEMENTATION THERAPY
     Dosage: 660 MG, UNK
     Route: 048
  3. SANDOZ METFORMIN FC [Concomitant]
     Indication: DIABETES MELLITUS
     Dosage: 500 MG, UNK
     Route: 048
  4. MYLAN-FUROSEMIDE [Concomitant]
     Indication: SUPPLEMENTATION THERAPY
     Dosage: 600 UNK, UNK
  5. OXYNORM [Concomitant]
     Active Substance: OXYCODONE HYDROCHLORIDE
     Indication: ANAESTHESIA
     Dosage: 10 MG, UNK
     Route: 048
  6. ASPAVOR [Suspect]
     Active Substance: ATORVASTATIN
     Indication: BLOOD CHOLESTEROL
     Dosage: 20 MG, DAILY
     Route: 048
  7. ADCO-ALZAM [Concomitant]
     Dosage: 0.5 MG, UNK
     Route: 048
  8. MYLAN-FUROSEMIDE [Concomitant]
     Indication: DIURETIC THERAPY
     Dosage: 40 NG, UNK
     Route: 048
  9. SANDOZ METFORMIN FC [Concomitant]
     Indication: HYPERTENSION
     Dosage: 80 UNK, UNK
  10. ASPEN-WARFARIN [Concomitant]
     Indication: ANTICOAGULANT THERAPY
     Dosage: 5 MG, UNK
     Route: 048
  11. ADCO-ZOLPIDEM HEMITARTRATE [Concomitant]
     Dosage: UNK
  12. OXYNORM [Concomitant]
     Active Substance: OXYCODONE HYDROCHLORIDE
     Indication: INSOMNIA
  13. SPIRACTIN [Concomitant]
     Active Substance: SPIRONOLACTONE
     Indication: HYPERTENSION
     Dosage: 25 MG, UNK
     Route: 048
  14. LOKIT [Concomitant]
     Dosage: 20 MG, UNK
     Route: 048
  15. ADCO-ZOLPIDEM HEMITARTRATE [Concomitant]
     Indication: INSOMNIA
     Dosage: 10 MG, UNK
     Route: 048

REACTIONS (4)
  - Hypertension [Fatal]
  - Coma [Not Recovered/Not Resolved]
  - Renal failure [Fatal]
  - Cardiac failure [Fatal]

NARRATIVE: CASE EVENT DATE: 2014
